FAERS Safety Report 22298903 (Version 1)
Quarter: 2023Q2

REPORT INFORMATION
  Report Type: Spontaneous
  Country: US (occurrence: None)
  Receive Date: 20230508
  Receipt Date: 20230508
  Transmission Date: 20230721
  Serious: Yes (Death)
  Sender: FDA-Public Use
  Company Number: None

PATIENT
  Age: 70 Year
  Sex: Female

DRUGS (1)
  1. COLISTIMETHATE SODIUM [Suspect]
     Active Substance: COLISTIMETHATE SODIUM
     Indication: Bronchiectasis
     Dosage: OTHER FREQUENCY : Q 12HRS;?
     Route: 055

REACTIONS (2)
  - Dyspnoea [None]
  - Pneumonia aspiration [None]

NARRATIVE: CASE EVENT DATE: 20230401
